FAERS Safety Report 14739579 (Version 1)
Quarter: 2018Q2

REPORT INFORMATION
  Report Type: Spontaneous
  Country: FR (occurrence: FR)
  Receive Date: 20180410
  Receipt Date: 20180410
  Transmission Date: 20180711
  Serious: Yes (Hospitalization, Other)
  Sender: FDA-Public Use
  Company Number: FR-MERCK KGAA-2045421

PATIENT
  Age: 52 Year
  Sex: Male

DRUGS (1)
  1. NOVOTHYROX [Suspect]
     Active Substance: LEVOTHYROXINE SODIUM
     Indication: PRODUCT USED FOR UNKNOWN INDICATION
     Dates: start: 201705

REACTIONS (26)
  - Pain in extremity [None]
  - Depressed mood [None]
  - Disturbance in attention [None]
  - Mobility decreased [None]
  - Erectile dysfunction [None]
  - Diarrhoea [None]
  - Loss of personal independence in daily activities [None]
  - Anxiety [Recovered/Resolved]
  - Insomnia [None]
  - Muscle spasms [None]
  - Asthenia [None]
  - Dyspnoea [None]
  - Loss of libido [None]
  - Asocial behaviour [None]
  - Hypertension [None]
  - Headache [None]
  - Alopecia [None]
  - Dizziness [None]
  - Drug intolerance [None]
  - Balance disorder [None]
  - Burning sensation [None]
  - Fatigue [Recovered/Resolved]
  - Nervousness [None]
  - Nausea [None]
  - Stress [None]
  - Illness anxiety disorder [None]

NARRATIVE: CASE EVENT DATE: 2017
